FAERS Safety Report 7323010-3 (Version None)
Quarter: 2011Q1

REPORT INFORMATION
  Report Type: 
  Country: None (occurrence: None)
  Receive Date: 20110301
  Receipt Date: 20110223
  Transmission Date: 20110831
  Serious: Yes (Death, Hospitalization)
  Sender: FDA-Public Use
  Company Number: PHHY2010JP88281

PATIENT
  Sex: Female
  Weight: 44 kg

DRUGS (3)
  1. AMLODIPINE [Concomitant]
     Dosage: 05 MG, UNK
     Route: 048
     Dates: start: 20070405
  2. VALSARTAN [Suspect]
     Indication: HYPERTENSION
     Dosage: 80 MG, QD
     Route: 048
     Dates: start: 20081209
  3. ASPIRIN [Concomitant]
     Dosage: 0.1 G, UNK
     Dates: start: 20070405

REACTIONS (1)
  - PNEUMONIA [None]
